FAERS Safety Report 9384237 (Version 1)
Quarter: 2013Q3

REPORT INFORMATION
  Report Type: Spontaneous
  Country: US (occurrence: None)
  Receive Date: 20130702
  Receipt Date: 20130702
  Transmission Date: 20140515
  Serious: Yes (Life-Threatening, Disabling, Other)
  Sender: FDA-Public Use
  Company Number: None

PATIENT
  Age: 35 Year
  Sex: Female
  Weight: 58.06 kg

DRUGS (3)
  1. CIPROFLOXACIN [Suspect]
     Route: 048
     Dates: start: 20121004, end: 20121007
  2. CIPROFLOXACIN [Suspect]
     Route: 048
     Dates: start: 20121004, end: 20121007
  3. ADVIL [Concomitant]

REACTIONS (17)
  - Urticaria [None]
  - Burning sensation [None]
  - Asthenia [None]
  - Muscle twitching [None]
  - Tremor [None]
  - Heart rate increased [None]
  - Tendon pain [None]
  - Vision blurred [None]
  - Vitreous floaters [None]
  - Muscular weakness [None]
  - Pain in jaw [None]
  - Feeling of body temperature change [None]
  - Pain [None]
  - Joint swelling [None]
  - Blood glucose abnormal [None]
  - Tremor [None]
  - Neuropathy peripheral [None]
